FAERS Safety Report 23759059 (Version 1)
Quarter: 2024Q2

REPORT INFORMATION
  Report Type: Spontaneous
  Country: US (occurrence: None)
  Receive Date: 20240418
  Receipt Date: 20240418
  Transmission Date: 20240716
  Serious: No
  Sender: FDA-Public Use
  Company Number: US-ROCHE-3370070

PATIENT
  Age: 72 Year
  Sex: Male

DRUGS (7)
  1. ESBRIET [Suspect]
     Active Substance: PIRFENIDONE
     Indication: Idiopathic pulmonary fibrosis
     Route: 065
     Dates: start: 20230523
  2. FUROSEMIDE [Concomitant]
     Active Substance: FUROSEMIDE
  3. LEVEMIR [Concomitant]
     Active Substance: INSULIN DETEMIR
     Dosage: 100 UNIT/ML
  4. MELATONIN [Concomitant]
     Active Substance: MELATONIN
  5. MUCINEX [Concomitant]
     Active Substance: GUAIFENESIN
     Dosage: TB1
  6. NOVOLOG [Concomitant]
     Active Substance: INSULIN ASPART
     Dosage: NOVOLOG 100 UNIT, FLEX SOP
  7. ROSUVASTATIN [Concomitant]
     Active Substance: ROSUVASTATIN

REACTIONS (6)
  - Cough [Unknown]
  - Fatigue [Unknown]
  - Productive cough [Unknown]
  - Headache [Unknown]
  - Insomnia [Unknown]
  - Peripheral swelling [Unknown]
